FAERS Safety Report 21104912 (Version 1)
Quarter: 2022Q3

REPORT INFORMATION
  Report Type: Spontaneous
  Country: US (occurrence: None)
  Receive Date: 20220719
  Receipt Date: 20220719
  Transmission Date: 20221027
  Serious: No
  Sender: FDA-Public Use
  Company Number: None

PATIENT
  Age: 70 Year
  Sex: Female

DRUGS (8)
  1. IBRANCE [Suspect]
     Active Substance: PALBOCICLIB
     Indication: Breast cancer female
     Dosage: OTHER FREQUENCY : 3S,1WOFF;?
     Route: 048
  2. CITRACEL W/VIT D [Concomitant]
  3. FASLODEX [Concomitant]
  4. NERVINE [Concomitant]
  5. SEROQUEL [Concomitant]
  6. TYLENOL EXTRA STRENGTH [Concomitant]
  7. VITAMIN C [Concomitant]
  8. XGEVA [Concomitant]

REACTIONS (1)
  - COVID-19 [None]
